FAERS Safety Report 9857088 (Version 2)
Quarter: 2014Q1

REPORT INFORMATION
  Report Type: Report from Study
  Country: JP (occurrence: JP)
  Receive Date: 20140130
  Receipt Date: 20140213
  Transmission Date: 20141002
  Serious: Yes (Hospitalization)
  Sender: FDA-Public Use
  Company Number: JP-TAKEDA-2014TJP000909

PATIENT
  Age: 61 Year
  Sex: Male
  Weight: 60 kg

DRUGS (4)
  1. ALOGLIPTIN [Suspect]
     Indication: TYPE 2 DIABETES MELLITUS
     Dosage: 25 MG, QD
     Route: 048
     Dates: start: 20120407, end: 20120529
  2. MICAMLO AP [Concomitant]
     Dosage: UNK
     Route: 048
  3. ESCARON [Concomitant]
     Dosage: UNK
     Route: 048
  4. ALLOZYM [Concomitant]
     Dosage: UNK
     Route: 048

REACTIONS (2)
  - Hepatitis alcoholic [Recovered/Resolved]
  - Condition aggravated [Recovered/Resolved]
